FAERS Safety Report 5797257-1 (Version None)
Quarter: 2008Q2

REPORT INFORMATION
  Report Type: 
  Country: None (occurrence: None)
  Receive Date: 20080627
  Receipt Date: 20080620
  Transmission Date: 20081010
  Serious: Yes (Hospitalization)
  Sender: FDA-Public Use
  Company Number: 2008SP012332

PATIENT
  Age: 57 Year
  Sex: Female
  Weight: 55 kg

DRUGS (28)
  1. TEMODAL [Suspect]
     Indication: ANAPLASTIC ASTROCYTOMA
     Dosage: 150 MG/M2; QD; PO; 200 MG/M2; QD; PO; 200 MG/M2; QD; PO; 200 MG/M2; QD; PO; 200 MG/M2; QD; PO; 200 M
     Route: 048
     Dates: start: 20060929, end: 20061003
  2. TEMODAL [Suspect]
     Indication: RECURRENT CANCER
     Dosage: 150 MG/M2; QD; PO; 200 MG/M2; QD; PO; 200 MG/M2; QD; PO; 200 MG/M2; QD; PO; 200 MG/M2; QD; PO; 200 M
     Route: 048
     Dates: start: 20060929, end: 20061003
  3. TEMODAL [Suspect]
     Indication: ANAPLASTIC ASTROCYTOMA
     Dosage: 150 MG/M2; QD; PO; 200 MG/M2; QD; PO; 200 MG/M2; QD; PO; 200 MG/M2; QD; PO; 200 MG/M2; QD; PO; 200 M
     Route: 048
     Dates: start: 20061027, end: 20061031
  4. TEMODAL [Suspect]
     Indication: RECURRENT CANCER
     Dosage: 150 MG/M2; QD; PO; 200 MG/M2; QD; PO; 200 MG/M2; QD; PO; 200 MG/M2; QD; PO; 200 MG/M2; QD; PO; 200 M
     Route: 048
     Dates: start: 20061027, end: 20061031
  5. TEMODAL [Suspect]
     Indication: ANAPLASTIC ASTROCYTOMA
     Dosage: 150 MG/M2; QD; PO; 200 MG/M2; QD; PO; 200 MG/M2; QD; PO; 200 MG/M2; QD; PO; 200 MG/M2; QD; PO; 200 M
     Route: 048
     Dates: start: 20061126, end: 20061130
  6. TEMODAL [Suspect]
     Indication: RECURRENT CANCER
     Dosage: 150 MG/M2; QD; PO; 200 MG/M2; QD; PO; 200 MG/M2; QD; PO; 200 MG/M2; QD; PO; 200 MG/M2; QD; PO; 200 M
     Route: 048
     Dates: start: 20061126, end: 20061130
  7. TEMODAL [Suspect]
     Indication: ANAPLASTIC ASTROCYTOMA
     Dosage: 150 MG/M2; QD; PO; 200 MG/M2; QD; PO; 200 MG/M2; QD; PO; 200 MG/M2; QD; PO; 200 MG/M2; QD; PO; 200 M
     Route: 048
     Dates: start: 20061224, end: 20061228
  8. TEMODAL [Suspect]
     Indication: RECURRENT CANCER
     Dosage: 150 MG/M2; QD; PO; 200 MG/M2; QD; PO; 200 MG/M2; QD; PO; 200 MG/M2; QD; PO; 200 MG/M2; QD; PO; 200 M
     Route: 048
     Dates: start: 20061224, end: 20061228
  9. TEMODAL [Suspect]
     Indication: ANAPLASTIC ASTROCYTOMA
     Dosage: 150 MG/M2; QD; PO; 200 MG/M2; QD; PO; 200 MG/M2; QD; PO; 200 MG/M2; QD; PO; 200 MG/M2; QD; PO; 200 M
     Route: 048
     Dates: start: 20070121, end: 20070125
  10. TEMODAL [Suspect]
     Indication: RECURRENT CANCER
     Dosage: 150 MG/M2; QD; PO; 200 MG/M2; QD; PO; 200 MG/M2; QD; PO; 200 MG/M2; QD; PO; 200 MG/M2; QD; PO; 200 M
     Route: 048
     Dates: start: 20070121, end: 20070125
  11. TEMODAL [Suspect]
     Indication: ANAPLASTIC ASTROCYTOMA
     Dosage: 150 MG/M2; QD; PO; 200 MG/M2; QD; PO; 200 MG/M2; QD; PO; 200 MG/M2; QD; PO; 200 MG/M2; QD; PO; 200 M
     Route: 048
     Dates: start: 20070218, end: 20070222
  12. TEMODAL [Suspect]
     Indication: RECURRENT CANCER
     Dosage: 150 MG/M2; QD; PO; 200 MG/M2; QD; PO; 200 MG/M2; QD; PO; 200 MG/M2; QD; PO; 200 MG/M2; QD; PO; 200 M
     Route: 048
     Dates: start: 20070218, end: 20070222
  13. TEMODAL [Suspect]
     Indication: ANAPLASTIC ASTROCYTOMA
     Dosage: 150 MG/M2; QD; PO; 200 MG/M2; QD; PO; 200 MG/M2; QD; PO; 200 MG/M2; QD; PO; 200 MG/M2; QD; PO; 200 M
     Route: 048
     Dates: start: 20070318, end: 20070322
  14. TEMODAL [Suspect]
     Indication: RECURRENT CANCER
     Dosage: 150 MG/M2; QD; PO; 200 MG/M2; QD; PO; 200 MG/M2; QD; PO; 200 MG/M2; QD; PO; 200 MG/M2; QD; PO; 200 M
     Route: 048
     Dates: start: 20070318, end: 20070322
  15. TEMODAL [Suspect]
     Indication: ANAPLASTIC ASTROCYTOMA
     Dosage: 150 MG/M2; QD; PO; 200 MG/M2; QD; PO; 200 MG/M2; QD; PO; 200 MG/M2; QD; PO; 200 MG/M2; QD; PO; 200 M
     Route: 048
     Dates: start: 20070418, end: 20070422
  16. TEMODAL [Suspect]
     Indication: RECURRENT CANCER
     Dosage: 150 MG/M2; QD; PO; 200 MG/M2; QD; PO; 200 MG/M2; QD; PO; 200 MG/M2; QD; PO; 200 MG/M2; QD; PO; 200 M
     Route: 048
     Dates: start: 20070418, end: 20070422
  17. TEMODAL [Suspect]
     Indication: ANAPLASTIC ASTROCYTOMA
     Dosage: 150 MG/M2; QD; PO; 200 MG/M2; QD; PO; 200 MG/M2; QD; PO; 200 MG/M2; QD; PO; 200 MG/M2; QD; PO; 200 M
     Route: 048
     Dates: start: 20070524, end: 20070528
  18. TEMODAL [Suspect]
     Indication: RECURRENT CANCER
     Dosage: 150 MG/M2; QD; PO; 200 MG/M2; QD; PO; 200 MG/M2; QD; PO; 200 MG/M2; QD; PO; 200 MG/M2; QD; PO; 200 M
     Route: 048
     Dates: start: 20070524, end: 20070528
  19. TEMODAL [Suspect]
     Indication: ANAPLASTIC ASTROCYTOMA
     Dosage: 150 MG/M2; QD; PO; 200 MG/M2; QD; PO; 200 MG/M2; QD; PO; 200 MG/M2; QD; PO; 200 MG/M2; QD; PO; 200 M
     Route: 048
     Dates: start: 20070621, end: 20070625
  20. TEMODAL [Suspect]
     Indication: RECURRENT CANCER
     Dosage: 150 MG/M2; QD; PO; 200 MG/M2; QD; PO; 200 MG/M2; QD; PO; 200 MG/M2; QD; PO; 200 MG/M2; QD; PO; 200 M
     Route: 048
     Dates: start: 20070621, end: 20070625
  21. ADETPHOS [Concomitant]
  22. CYANOCOBALAMIN [Concomitant]
  23. FAMOTIDINE [Concomitant]
  24. MYSTAN [Concomitant]
  25. NASEA-OD [Concomitant]
  26. PREDONINE [Concomitant]
  27. GLYCEOL [Concomitant]
  28. DECADRON [Concomitant]

REACTIONS (3)
  - BRAIN OEDEMA [None]
  - CONDITION AGGRAVATED [None]
  - HYPONATRAEMIA [None]
